FAERS Safety Report 16322256 (Version 1)
Quarter: 2019Q2

REPORT INFORMATION
  Report Type: Spontaneous
  Country: US (occurrence: US)
  Receive Date: 20190516
  Receipt Date: 20190516
  Transmission Date: 20190711
  Serious: Yes (Other)
  Sender: FDA-Public Use
  Company Number: US-TARO-2019TAR00128

PATIENT
  Age: 69 Year
  Sex: Male
  Weight: 85.71 kg

DRUGS (5)
  1. AMIODARONE HCL TABLET 200 MG [Suspect]
     Active Substance: AMIODARONE HYDROCHLORIDE
     Dosage: 200 MG, 2X/DAY
     Route: 048
     Dates: start: 201710, end: 201710
  2. AMIODARONE HCL TABLET 200 MG [Suspect]
     Active Substance: AMIODARONE HYDROCHLORIDE
     Dosage: 200 MG, 1X/DAY
     Route: 048
     Dates: start: 201710, end: 201710
  3. CEFUROXIME AXETIL (AUROBINDO) [Suspect]
     Active Substance: CEFUROXIME AXETIL
     Dosage: 500 MG, 2X/DAY
     Route: 048
     Dates: start: 201710, end: 201710
  4. CEFUROXIME AXETIL (AUROBINDO) [Suspect]
     Active Substance: CEFUROXIME AXETIL
     Dosage: 500 MG, 1X/DAY
     Route: 048
     Dates: start: 201710, end: 201710
  5. BABY ASPIRIN [Concomitant]
     Active Substance: ASPIRIN
     Dosage: 81 MG, 1X/DAY IN THE MORNING (WHEN HE THINKS OF IT)

REACTIONS (10)
  - Speech disorder [Not Recovered/Not Resolved]
  - Gait disturbance [Not Recovered/Not Resolved]
  - Malaise [Unknown]
  - Cough [Recovered/Resolved]
  - Dyspnoea [Recovering/Resolving]
  - Weight decreased [Not Recovered/Not Resolved]
  - Prescribed underdose [Recovered/Resolved]
  - Muscle atrophy [Not Recovered/Not Resolved]
  - Asthenia [Not Recovered/Not Resolved]
  - Pain [Unknown]

NARRATIVE: CASE EVENT DATE: 201710
